FAERS Safety Report 6974547-8 (Version None)
Quarter: 2010Q3

REPORT INFORMATION
  Report Type: 
  Country: None (occurrence: None)
  Receive Date: 20100909
  Receipt Date: 20080916
  Transmission Date: 20110219
  Serious: No
  Sender: FDA-Public Use
  Company Number: US-WYE-H06016708

PATIENT
  Sex: Female

DRUGS (5)
  1. PROTONIX [Suspect]
     Indication: HIATUS HERNIA
     Route: 048
  2. LIPITOR [Concomitant]
  3. AMARYL [Concomitant]
  4. SYNTHROID [Concomitant]
  5. METFORMIN [Concomitant]

REACTIONS (1)
  - BLOOD CHROMOGRANIN A INCREASED [None]
